FAERS Safety Report 22057421 (Version 1)
Quarter: 2023Q1

REPORT INFORMATION
  Report Type: Spontaneous
  Country: JP (occurrence: JP)
  Receive Date: 20230303
  Receipt Date: 20230303
  Transmission Date: 20230418
  Serious: Yes (Death, Hospitalization, Other)
  Sender: FDA-Public Use
  Company Number: None

PATIENT
  Age: 56 Year
  Sex: Female

DRUGS (3)
  1. DEXAMETHASONE [Suspect]
     Active Substance: DEXAMETHASONE
     Indication: Nodular lymphocyte predominant Hodgkin lymphoma
  2. GEMCITABINE [Concomitant]
     Active Substance: GEMCITABINE
     Indication: Nodular lymphocyte predominant Hodgkin lymphoma
  3. CISPLATIN [Concomitant]
     Active Substance: CISPLATIN
     Indication: Nodular lymphocyte predominant Hodgkin lymphoma

REACTIONS (3)
  - Pneumocystis jirovecii pneumonia [Fatal]
  - Gastroenteritis bacterial [Unknown]
  - Therapy partial responder [Unknown]
